FAERS Safety Report 24639555 (Version 1)
Quarter: 2024Q4

REPORT INFORMATION
  Report Type: Spontaneous
  Country: FR (occurrence: FR)
  Receive Date: 20241119
  Receipt Date: 20241119
  Transmission Date: 20250114
  Serious: Yes (Other)
  Sender: ORGANON
  Company Number: None

PATIENT
  Age: 23 Year
  Sex: Female

DRUGS (3)
  1. NEXPLANON [Interacting]
     Active Substance: ETONOGESTREL
     Indication: Contraception
     Dosage: 1 IMPLANT (68 MILLIGRAM), IMPLANT FOR SUBCUTANEOUS USE
     Route: 058
     Dates: start: 20220721, end: 202409
  2. TEGRETOL [Interacting]
     Active Substance: CARBAMAZEPINE
     Indication: Product used for unknown indication
     Dosage: UNK
  3. VIMPAT [Concomitant]
     Active Substance: LACOSAMIDE
     Indication: Product used for unknown indication
     Dosage: UNK

REACTIONS (1)
  - Pregnancy on contraceptive [Recovered/Resolved]

NARRATIVE: CASE EVENT DATE: 20240915
